FAERS Safety Report 18883113 (Version 2)
Quarter: 2021Q3

REPORT INFORMATION
  Report Type: Report from Study
  Country: ES (occurrence: ES)
  Receive Date: 20210211
  Receipt Date: 20210721
  Transmission Date: 20211014
  Serious: Yes (Hospitalization)
  Sender: FDA-Public Use
  Company Number: ES-CELGENEUS-ESP-20210200848

PATIENT
  Age: 90 Year
  Sex: Female

DRUGS (1)
  1. LENALIDOMIDE [Suspect]
     Active Substance: LENALIDOMIDE
     Indication: MYELODYSPLASTIC SYNDROME
     Route: 048

REACTIONS (2)
  - Pulmonary embolism [Recovered/Resolved]
  - Portosplenomesenteric venous thrombosis [Recovered/Resolved]

NARRATIVE: CASE EVENT DATE: 20201228
